FAERS Safety Report 13517940 (Version 1)
Quarter: 2017Q2

REPORT INFORMATION
  Report Type: Spontaneous
  Country: GR (occurrence: GR)
  Receive Date: 20170505
  Receipt Date: 20170505
  Transmission Date: 20170830
  Serious: Yes (Other)
  Sender: FDA-Public Use
  Company Number: GR-GLAXOSMITHKLINE-GR2017GSK065113

PATIENT
  Age: 80 Year
  Sex: Female

DRUGS (1)
  1. VOLTAREN [Suspect]
     Active Substance: DICLOFENAC SODIUM
     Indication: ARTHRITIS
     Dosage: UNK
     Route: 061
     Dates: start: 2004

REACTIONS (3)
  - Incorrect route of drug administration [Unknown]
  - Off label use [Unknown]
  - Gastrointestinal haemorrhage [Unknown]
